FAERS Safety Report 6163480-X (Version None)
Quarter: 2009Q2

REPORT INFORMATION
  Report Type: 
  Country: None (occurrence: None)
  Receive Date: 20090420
  Receipt Date: 20071220
  Transmission Date: 20091009
  Serious: Yes (Hospitalization)
  Sender: FDA-Public Use
  Company Number: SPV1-2007-05258

PATIENT
  Age: 16 Year
  Sex: Female

DRUGS (2)
  1. LIALDA [Suspect]
     Indication: COLITIS
     Dosage: 4.8 G, 1X/DAY:QD, ORAL
     Route: 048
     Dates: start: 20071213, end: 20071216
  2. PREDNISONE [Concomitant]

REACTIONS (1)
  - PANCREATITIS [None]
